FAERS Safety Report 10667193 (Version 1)
Quarter: 2014Q4

REPORT INFORMATION
  Report Type: Spontaneous
  Country: FR (occurrence: FR)
  Receive Date: 20141222
  Receipt Date: 20141222
  Transmission Date: 20150529
  Serious: Yes (Death, Other)
  Sender: FDA-Public Use
  Company Number: FR-JNJFOC-20141208873

PATIENT
  Age: 70 Year
  Sex: Male

DRUGS (6)
  1. DIGOXINE [Concomitant]
     Active Substance: DIGOXIN
  2. NITRIDERM [Concomitant]
     Active Substance: NITROGLYCERIN
  3. CELIPROLOL [Concomitant]
     Active Substance: CELIPROLOL
  4. XARELTO [Suspect]
     Active Substance: RIVAROXABAN
     Indication: ATRIAL FIBRILLATION
     Route: 048
     Dates: start: 201405, end: 20141209
  5. XARELTO [Suspect]
     Active Substance: RIVAROXABAN
     Indication: CEREBROVASCULAR ACCIDENT PROPHYLAXIS
     Route: 048
     Dates: start: 201405, end: 20141209
  6. FUROSEMIDE. [Concomitant]
     Active Substance: FUROSEMIDE

REACTIONS (3)
  - Subdural haematoma [Fatal]
  - Altered state of consciousness [Unknown]
  - Medication error [Unknown]

NARRATIVE: CASE EVENT DATE: 20141208
